FAERS Safety Report 18924922 (Version 4)
Quarter: 2021Q2

REPORT INFORMATION
  Report Type: Spontaneous
  Country: CA (occurrence: CA)
  Receive Date: 20210222
  Receipt Date: 20210610
  Transmission Date: 20210717
  Serious: Yes (Other)
  Sender: FDA-Public Use
  Company Number: CA-PFIZER INC-2021021062

PATIENT
  Age: 61 Year
  Sex: Male

DRUGS (8)
  1. XELJANZ XR [Suspect]
     Active Substance: TOFACITINIB CITRATE
     Indication: PSORIATIC ARTHROPATHY
     Dosage: 11 MG, 1X/DAY
     Route: 048
     Dates: start: 20210108, end: 20210507
  2. XELJANZ XR [Suspect]
     Active Substance: TOFACITINIB CITRATE
     Dosage: 11 MG, 1X/DAY
     Route: 048
     Dates: start: 20210108, end: 2021
  3. SULFASALAZINE. [Concomitant]
     Active Substance: SULFASALAZINE
     Dosage: 1 DF (DOSE AND FREQUENCY UNKNOWN)
     Route: 065
  4. ENSTILAR [Concomitant]
     Active Substance: BETAMETHASONE DIPROPIONATE\CALCIPOTRIENE HYDRATE
     Indication: PSORIASIS
     Dosage: UNK
  5. HYDROXYCHLOROQUINE [Concomitant]
     Active Substance: HYDROXYCHLOROQUINE
     Dosage: 1 DF DOSE AND FREQUENCY UNKNOWN (DOSAGE UNKNOWN)
     Route: 065
     Dates: start: 202003
  6. XELJANZ XR [Suspect]
     Active Substance: TOFACITINIB CITRATE
     Dosage: 11 MG, 1X/DAY
     Route: 048
     Dates: start: 202105
  7. METHOTREXATE. [Concomitant]
     Active Substance: METHOTREXATE
     Dosage: 25 MG (FREQUENCY UNKNOWN)
     Route: 058
     Dates: start: 201909, end: 20210507
  8. METHOTREXATE. [Concomitant]
     Active Substance: METHOTREXATE
     Dosage: 25 MG (FREQUENCY UNKNOWN)
     Route: 058
     Dates: start: 201909, end: 2021

REACTIONS (13)
  - Epistaxis [Recovered/Resolved]
  - Condition aggravated [Unknown]
  - Vertigo [Unknown]
  - Cataract [Not Recovered/Not Resolved]
  - Frequent bowel movements [Unknown]
  - Glaucoma [Not Recovered/Not Resolved]
  - Abdominal pain [Recovered/Resolved]
  - Asthenopia [Unknown]
  - Headache [Unknown]
  - Eye pruritus [Unknown]
  - Abdominal pain upper [Recovered/Resolved]
  - Dry eye [Unknown]
  - Dizziness [Unknown]

NARRATIVE: CASE EVENT DATE: 202101
